FAERS Safety Report 22238121 (Version 1)
Quarter: 2023Q2

REPORT INFORMATION
  Report Type: Spontaneous
  Country: CN (occurrence: None)
  Receive Date: 20230421
  Receipt Date: 20230421
  Transmission Date: 20230721
  Serious: Yes (Death, Other)
  Sender: FDA-Public Use
  Company Number: CN-ROCHE-3330659

PATIENT

DRUGS (4)
  1. TECENTRIQ [Suspect]
     Active Substance: ATEZOLIZUMAB
     Indication: Non-small cell lung cancer
     Route: 065
  2. AVASTIN [Suspect]
     Active Substance: BEVACIZUMAB
     Indication: Non-small cell lung cancer
     Route: 065
  3. PLATINUM [Concomitant]
     Active Substance: PLATINUM
     Indication: Non-small cell lung cancer
  4. PEMETREXED [Concomitant]
     Active Substance: PEMETREXED
     Indication: Non-small cell lung cancer

REACTIONS (29)
  - Death [Fatal]
  - Asthenia [Unknown]
  - Anaemia [Unknown]
  - Nausea [Unknown]
  - Neutropenia [Unknown]
  - Constipation [Unknown]
  - Appetite disorder [Unknown]
  - Respiration abnormal [Unknown]
  - Thrombocytopenia [Unknown]
  - Musculoskeletal pain [Unknown]
  - Diarrhoea [Unknown]
  - Hepatocellular injury [Unknown]
  - White blood cell analysis abnormal [Unknown]
  - Liver function test abnormal [Unknown]
  - Cough [Unknown]
  - Hypertension [Unknown]
  - Headache [Unknown]
  - Pain [Unknown]
  - Renal failure [Unknown]
  - Rash [Unknown]
  - Gastrointestinal pain [Unknown]
  - Pyrexia [Unknown]
  - Nasal disorder [Unknown]
  - Lacrimation disorder [Unknown]
  - Mouth ulceration [Unknown]
  - Vomiting [Unknown]
  - Hepatitis [Unknown]
  - Abdominal pain [Unknown]
  - Renal impairment [Unknown]
